FAERS Safety Report 4610822-X (Version None)
Quarter: 2005Q2

REPORT INFORMATION
  Report Type: 
  Country: None (occurrence: None)
  Receive Date: 20050225
  Receipt Date: 20041122
  Transmission Date: 20051028
  Serious: Yes (Other)
  Sender: FDA-Public Use
  Company Number: C2004-200-493

PATIENT
  Sex: Female
  Weight: 58.9676 kg

DRUGS (6)
  1. CEFAZOLIN [Suspect]
     Indication: INFECTION PROPHYLAXIS
     Dosage: 1G/L ONCE IV
     Route: 042
     Dates: start: 20041111
  2. MIDAZOLAM HCL [Concomitant]
  3. ZANTAC [Concomitant]
  4. PROPOFOL [Concomitant]
  5. RUBINOL [Concomitant]
  6. RIGLAN [Concomitant]

REACTIONS (1)
  - HYPERSENSITIVITY [None]
